FAERS Safety Report 16735614 (Version 2)
Quarter: 2019Q3

REPORT INFORMATION
  Report Type: Report from Study
  Country: IT (occurrence: IT)
  Receive Date: 20190823
  Receipt Date: 20190826
  Transmission Date: 20191005
  Serious: Yes (Other)
  Sender: FDA-Public Use
  Company Number: PHHY2019IT195863

PATIENT
  Sex: Female

DRUGS (3)
  1. TASIGNA [Suspect]
     Active Substance: NILOTINIB
     Indication: CHRONIC MYELOID LEUKAEMIA
     Dosage: 600 MG, BID (600MG-0-600MG)
     Route: 065
  2. TASIGNA [Suspect]
     Active Substance: NILOTINIB
     Dosage: 400 MG, QD (1-0-0-0)
     Route: 065
     Dates: start: 20190730
  3. TASIGNA [Suspect]
     Active Substance: NILOTINIB
     Dosage: 600 MG, QD
     Route: 065
     Dates: start: 20190418, end: 20190612

REACTIONS (11)
  - White blood cell count decreased [Recovering/Resolving]
  - Pyrexia [Recovered/Resolved]
  - Confusional state [Unknown]
  - Asthenia [Recovered/Resolved]
  - Immune system disorder [Unknown]
  - Visual impairment [Recovered/Resolved]
  - Vision blurred [Unknown]
  - Platelet count decreased [Recovering/Resolving]
  - Incorrect dose administered [Unknown]
  - Inappropriate schedule of product administration [Not Recovered/Not Resolved]
  - Neutrophil count decreased [Recovering/Resolving]

NARRATIVE: CASE EVENT DATE: 201906
